FAERS Safety Report 11844212 (Version 1)
Quarter: 2015Q4

REPORT INFORMATION
  Report Type: Spontaneous
  Country: CN (occurrence: CN)
  Receive Date: 20151217
  Receipt Date: 20151217
  Transmission Date: 20160305
  Serious: Yes (Hospitalization)
  Sender: FDA-Public Use
  Company Number: CN-ASTRAZENECA-2015SF06213

PATIENT
  Age: 80 Year
  Sex: Male

DRUGS (9)
  1. PLENDIL [Suspect]
     Active Substance: FELODIPINE
     Dosage: 2.5 MG IN THE AFTERNOON
     Route: 048
  2. PLENDIL [Suspect]
     Active Substance: FELODIPINE
     Dosage: 2.5 MG, 3:00 AM IN THE MORNING
     Route: 048
  3. GINKGO BILOBA LEAF EXTRACT [Concomitant]
     Active Substance: GINKGO BILOBA LEAF EXTRACT
     Dosage: 2 TABLETS TWO TIMES A DAY/THREE TIMES A DAY
  4. QISHAO [Concomitant]
     Dates: start: 20151103
  5. PLENDIL [Suspect]
     Active Substance: FELODIPINE
     Dosage: 5 MG, 10 AM EVERY DAY
     Route: 048
     Dates: start: 201511
  6. DIOVAN [Concomitant]
     Active Substance: VALSARTAN
     Dates: start: 201511, end: 20151127
  7. COZAAR [Concomitant]
     Active Substance: LOSARTAN POTASSIUM
  8. FINASTERIDE. [Concomitant]
     Active Substance: FINASTERIDE
  9. PROSCAR [Concomitant]
     Active Substance: FINASTERIDE

REACTIONS (4)
  - Cerebral infarction [Unknown]
  - Blood pressure increased [Recovering/Resolving]
  - Pollakiuria [Recovered/Resolved]
  - Pain [Unknown]

NARRATIVE: CASE EVENT DATE: 201511
